FAERS Safety Report 15597473 (Version 1)
Quarter: 2018Q4

REPORT INFORMATION
  Report Type: Spontaneous
  Country: CN (occurrence: CN)
  Receive Date: 20181108
  Receipt Date: 20181108
  Transmission Date: 20190205
  Serious: Yes (Life-Threatening, Other)
  Sender: FDA-Public Use
  Company Number: CN-BAXTER-2018BAX027242

PATIENT
  Age: 86 Year
  Sex: Male
  Weight: 60 kg

DRUGS (1)
  1. 20% MANNITOL INJECTION [Suspect]
     Active Substance: MANNITOL
     Indication: ANGLE CLOSURE GLAUCOMA
     Dosage: 120 DROPS PER MINUTE
     Route: 041
     Dates: start: 20180911, end: 20180912

REACTIONS (5)
  - Altered state of consciousness [Unknown]
  - Hypersensitivity [Recovered/Resolved]
  - Tremor [Unknown]
  - Chest discomfort [Unknown]
  - Speech disorder [Unknown]

NARRATIVE: CASE EVENT DATE: 20180912
